FAERS Safety Report 13829602 (Version 3)
Quarter: 2017Q4

REPORT INFORMATION
  Report Type: Spontaneous
  Country: US (occurrence: US)
  Receive Date: 20170803
  Receipt Date: 20171004
  Transmission Date: 20180320
  Serious: No
  Sender: FDA-Public Use
  Company Number: US-BRISTOL-MYERS SQUIBB COMPANY-BMS-2017-068010

PATIENT
  Sex: Male

DRUGS (1)
  1. SPRYCEL [Suspect]
     Active Substance: DASATINIB
     Indication: PRODUCT USED FOR UNKNOWN INDICATION
     Dosage: 100 MG, QD
     Route: 048

REACTIONS (7)
  - Sinusitis [Unknown]
  - Skin ulcer [Unknown]
  - Sneezing [Unknown]
  - Diarrhoea [Unknown]
  - Gastric disorder [Unknown]
  - Acne [Unknown]
  - Rhinorrhoea [Unknown]
